FAERS Safety Report 11259554 (Version 1)
Quarter: 2015Q3

REPORT INFORMATION
  Report Type: Spontaneous
  Country: US (occurrence: None)
  Receive Date: 20150709
  Receipt Date: 20150709
  Transmission Date: 20151125
  Serious: No
  Sender: FDA-Public Use
  Company Number: None

PATIENT
  Age: 83 Year
  Sex: Female
  Weight: 49.9 kg

DRUGS (4)
  1. AMLODIPINE [Concomitant]
     Active Substance: AMLODIPINE BESYLATE
  2. TIMOLOL MALEATE SOLUTION [Concomitant]
  3. PREDNISONE 20MG [Suspect]
     Active Substance: PREDNISONE
     Indication: EAR INFECTION VIRAL
     Dosage: 18 PILLS, SEE COMPLAINT, TAKEN BY MOUTH
     Route: 048
     Dates: start: 20150706, end: 20150706
  4. IATANOPROST OPHTHALMIC SOLUTION [Concomitant]

REACTIONS (2)
  - Drug dispensing error [None]
  - Transcription medication error [None]

NARRATIVE: CASE EVENT DATE: 20150706
